FAERS Safety Report 19123098 (Version 1)
Quarter: 2021Q2

REPORT INFORMATION
  Report Type: Spontaneous
  Country: US (occurrence: US)
  Receive Date: 20210412
  Receipt Date: 20210412
  Transmission Date: 20210717
  Serious: No
  Sender: FDA-Public Use
  Company Number: US-PFIZER INC-2020054316

PATIENT
  Age: 64 Year
  Sex: Male
  Weight: 145.15 kg

DRUGS (2)
  1. SOMAVERT [Suspect]
     Active Substance: PEGVISOMANT
     Indication: ACROMEGALY
     Dosage: 20 MG
     Dates: start: 20200220
  2. SOMAVERT [Suspect]
     Active Substance: PEGVISOMANT
     Dosage: 20 MG, DAILY (20 MG INJECTION EVERY DAY)

REACTIONS (2)
  - Insulin-like growth factor increased [Unknown]
  - Product dose omission issue [Unknown]
